FAERS Safety Report 16696167 (Version 1)
Quarter: 2019Q3

REPORT INFORMATION
  Report Type: Spontaneous
  Country: US (occurrence: US)
  Receive Date: 20190813
  Receipt Date: 20190813
  Transmission Date: 20191004
  Serious: Yes (Death, Other)
  Sender: FDA-Public Use
  Company Number: US-SUN PHARMACEUTICAL INDUSTRIES LTD-2019R1-216151

PATIENT
  Age: 22 Month
  Sex: Female

DRUGS (1)
  1. DOXORUBICIN [Suspect]
     Active Substance: DOXORUBICIN
     Indication: CHEMOTHERAPY
     Dosage: UNK
     Route: 065

REACTIONS (7)
  - Arrhythmia [Fatal]
  - Hyponatraemia [Fatal]
  - Seizure [Fatal]
  - Acute respiratory failure [Fatal]
  - Brain oedema [Unknown]
  - Tumour lysis syndrome [Unknown]
  - Brain herniation [Unknown]
